FAERS Safety Report 15416491 (Version 4)
Quarter: 2019Q1

REPORT INFORMATION
  Report Type: Report from Study
  Country: CO (occurrence: CO)
  Receive Date: 20180924
  Receipt Date: 20190227
  Transmission Date: 20190417
  Serious: Yes (Hospitalization)
  Sender: FDA-Public Use
  Company Number: PHHY2018CO100312

PATIENT
  Age: 69 Year
  Sex: Female
  Weight: 53 kg

DRUGS (3)
  1. TASIGNA [Suspect]
     Active Substance: NILOTINIB
     Dosage: 400 MG, QD
     Route: 048
  2. TASIGNA [Suspect]
     Active Substance: NILOTINIB
     Dosage: 400 MG, QD (APPROX.MAR 2018)
     Route: 048
     Dates: start: 201803
  3. TASIGNA [Suspect]
     Active Substance: NILOTINIB
     Indication: CHRONIC MYELOID LEUKAEMIA
     Dosage: 400 MG, QD (APPROX. 4 YEARS AGO)
     Route: 048
     Dates: end: 201706

REACTIONS (7)
  - Hypertension [Unknown]
  - Blood pressure increased [Recovered/Resolved]
  - Venous occlusion [Unknown]
  - Inappropriate schedule of product administration [Unknown]
  - Pain in extremity [Recovering/Resolving]
  - Hypothyroidism [Unknown]
  - Skin lesion [Unknown]

NARRATIVE: CASE EVENT DATE: 20181013
